FAERS Safety Report 11910343 (Version 3)
Quarter: 2016Q1

REPORT INFORMATION
  Report Type: Spontaneous
  Country: US (occurrence: US)
  Receive Date: 20160112
  Receipt Date: 20160217
  Transmission Date: 20160526
  Serious: No
  Sender: FDA-Public Use
  Company Number: US-GLAXOSMITHKLINE-US2016002426

PATIENT
  Age: 74 Year
  Sex: Male

DRUGS (2)
  1. ALBUTEROL. [Concomitant]
     Active Substance: ALBUTEROL
  2. ANORO ELLIPTA [Suspect]
     Active Substance: UMECLIDINIUM BROMIDE\VILANTEROL TRIFENATATE
     Indication: CHRONIC OBSTRUCTIVE PULMONARY DISEASE
     Dosage: 1 PUFF(S), QD
     Dates: start: 20151030

REACTIONS (7)
  - Oxygen saturation decreased [Recovered/Resolved]
  - Product taste abnormal [Unknown]
  - Drug ineffective [Unknown]
  - Dyspnoea [Recovering/Resolving]
  - Product physical issue [Unknown]
  - Product quality issue [Unknown]
  - Wheezing [Recovering/Resolving]

NARRATIVE: CASE EVENT DATE: 20160107
